FAERS Safety Report 25022266 (Version 1)
Quarter: 2025Q1

REPORT INFORMATION
  Report Type: Spontaneous
  Country: ES (occurrence: ES)
  Receive Date: 20250228
  Receipt Date: 20250228
  Transmission Date: 20250409
  Serious: Yes (Hospitalization, Other)
  Sender: CELLTRION
  Company Number: ES-ROCHE-10000006893

PATIENT

DRUGS (2)
  1. RITUXIMAB [Suspect]
     Active Substance: RITUXIMAB
     Indication: Product used for unknown indication
     Route: 065
     Dates: start: 20131111, end: 20220722
  2. OCREVUS [Suspect]
     Active Substance: OCRELIZUMAB
     Indication: Product used for unknown indication
     Dosage: 300 MG EVERY 2 WEEKS (300 MG EACH 15 DAYS, AND THEN 600 MG EACH 6 MONTHS)
     Route: 065
     Dates: end: 20240306

REACTIONS (6)
  - Organising pneumonia [Unknown]
  - Interstitial lung disease [Unknown]
  - Lymphopenia [Unknown]
  - Respiratory failure [Unknown]
  - Febrile neutropenia [Unknown]
  - Off label use [Unknown]

NARRATIVE: CASE EVENT DATE: 20220801
